FAERS Safety Report 9093742 (Version 1)
Quarter: 2013Q1

REPORT INFORMATION
  Report Type: Spontaneous
  Country: US (occurrence: None)
  Receive Date: 20130219
  Receipt Date: 20130219
  Transmission Date: 20140127
  Serious: Yes (Hospitalization)
  Sender: FDA-Public Use
  Company Number: None

PATIENT
  Age: 60 Day
  Sex: Female
  Weight: 73.94 kg

DRUGS (1)
  1. METHYLPREDNISOLONE ACETATE [Suspect]
     Dosage: 80MG P  EPIDURAL
     Route: 008
     Dates: start: 20120717, end: 20120926

REACTIONS (4)
  - Extradural abscess [None]
  - Product contamination [None]
  - Meningitis fungal [None]
  - Product quality issue [None]
